FAERS Safety Report 5028582-X (Version None)
Quarter: 2006Q2

REPORT INFORMATION
  Report Type: 
  Country: None (occurrence: None)
  Receive Date: 20060616
  Receipt Date: 20060616
  Transmission Date: 20061013
  Serious: No
  Sender: FDA-Public Use
  Company Number: None

PATIENT

DRUGS (2)
  1. DURAGESIC-50 [Suspect]
     Indication: FIBROMYALGIA
     Dosage: APPLY Q72 HOURS
     Dates: start: 20060329
  2. DURAGESIC-50 [Suspect]
     Indication: MYELOPATHY
     Dosage: APPLY Q72 HOURS
     Dates: start: 20060329

REACTIONS (3)
  - DRUG EFFECT DECREASED [None]
  - PHARMACEUTICAL PRODUCT COMPLAINT [None]
  - THERAPEUTIC RESPONSE UNEXPECTED WITH DRUG SUBSTITUTION [None]
